FAERS Safety Report 6201972-5 (Version None)
Quarter: 2009Q2

REPORT INFORMATION
  Report Type: 
  Country: None (occurrence: None)
  Receive Date: 20090526
  Receipt Date: 20090515
  Transmission Date: 20091009
  Serious: Yes (Hospitalization)
  Sender: FDA-Public Use
  Company Number: A0781649A

PATIENT
  Age: 18 Year
  Sex: Female
  Weight: 52.3 kg

DRUGS (5)
  1. LAMICTAL [Suspect]
     Dosage: 900MG PER DAY
     Route: 048
  2. KEPPRA [Suspect]
  3. DILANTIN [Suspect]
     Dates: start: 20081201
  4. TRILEPTAL [Suspect]
  5. PROGESTERONE [Concomitant]

REACTIONS (15)
  - ANOREXIA [None]
  - ASTHENIA [None]
  - BALANCE DISORDER [None]
  - CONSTIPATION [None]
  - CONVULSION [None]
  - DEPRESSION [None]
  - DRUG INTERACTION [None]
  - DRUG TOXICITY [None]
  - FATIGUE [None]
  - LETHARGY [None]
  - NAUSEA [None]
  - OVERDOSE [None]
  - VISION BLURRED [None]
  - VOMITING [None]
  - WEIGHT DECREASED [None]
